FAERS Safety Report 25602768 (Version 2)
Quarter: 2025Q4

REPORT INFORMATION
  Report Type: Spontaneous
  Country: US (occurrence: US)
  Receive Date: 20250724
  Receipt Date: 20251023
  Transmission Date: 20260118
  Serious: No
  Sender: BLUEPRINT MEDICINES
  Company Number: US-Blueprint Medicines Corporation-2025-AER-01579

PATIENT
  Age: 53 Year
  Sex: Female

DRUGS (2)
  1. AYVAKIT [Suspect]
     Active Substance: AVAPRITINIB
     Indication: Systemic mastocytosis
     Route: 065
     Dates: start: 202504
  2. AYVAKIT [Suspect]
     Active Substance: AVAPRITINIB
     Route: 065
     Dates: start: 202504

REACTIONS (6)
  - Depression [Unknown]
  - Fatigue [Unknown]
  - Amnesia [Unknown]
  - Anaemia [Unknown]
  - Vitamin D deficiency [Unknown]
  - Oedema [Unknown]
